FAERS Safety Report 6923229-7 (Version None)
Quarter: 2010Q3

REPORT INFORMATION
  Report Type: 
  Country: None (occurrence: None)
  Receive Date: 20100813
  Receipt Date: 20100804
  Transmission Date: 20110219
  Serious: Yes (Other)
  Sender: FDA-Public Use
  Company Number: IT-ROCHE-719160

PATIENT
  Age: 38 Year
  Sex: Male

DRUGS (3)
  1. ALL-TRANS-RETINOIC ACID [Suspect]
     Dosage: FOR 30 DAYS
     Route: 065
  2. ALL-TRANS-RETINOIC ACID [Suspect]
     Dosage: 5-MONTH CYCLE
     Route: 065
  3. IDARUBICIN HCL [Concomitant]
     Dosage: ON DAYS 2, 4, 6, AND 8.

REACTIONS (2)
  - CHLOROMA [None]
  - RETINOIC ACID SYNDROME [None]
